FAERS Safety Report 10103041 (Version 2)
Quarter: 2014Q2

REPORT INFORMATION
  Report Type: Spontaneous
  Country: US (occurrence: US)
  Receive Date: 20140424
  Receipt Date: 20140620
  Transmission Date: 20141212
  Serious: No
  Sender: FDA-Public Use
  Company Number: US-BRISTOL-MYERS SQUIBB COMPANY-20095477

PATIENT
  Age: 67 Year
  Sex: Male

DRUGS (2)
  1. ELIQUIS [Suspect]
     Indication: ATRIAL FIBRILLATION
     Dosage: 2.5 MG
  2. IBUPROFEN [Concomitant]

REACTIONS (3)
  - Epistaxis [Unknown]
  - Haemorrhage [Unknown]
  - Hypotension [Unknown]
